FAERS Safety Report 19854388 (Version 1)
Quarter: 2021Q3

REPORT INFORMATION
  Report Type: Report from Study
  Country: US (occurrence: US)
  Receive Date: 20210920
  Receipt Date: 20210920
  Transmission Date: 20211014
  Serious: No
  Sender: FDA-Public Use
  Company Number: NVSC2021US211468

PATIENT
  Age: 68 Year
  Sex: Female

DRUGS (2)
  1. PIQRAY [Suspect]
     Active Substance: ALPELISIB
     Dosage: 150 MG
     Route: 065
     Dates: start: 20210910, end: 20210910
  2. PIQRAY [Suspect]
     Active Substance: ALPELISIB
     Indication: BREAST CANCER
     Dosage: 300 MG/KG, QD
     Route: 048

REACTIONS (7)
  - Dry skin [Recovering/Resolving]
  - Rash [Recovered/Resolved]
  - Body temperature increased [Recovered/Resolved]
  - Dizziness [Recovered/Resolved]
  - Treatment failure [Not Recovered/Not Resolved]
  - Tremor [Recovered/Resolved]
  - Nausea [Recovered/Resolved]

NARRATIVE: CASE EVENT DATE: 20210810
